FAERS Safety Report 7043976-9 (Version None)
Quarter: 2010Q4

REPORT INFORMATION
  Report Type: 
  Country: None (occurrence: None)
  Receive Date: 20101012
  Receipt Date: 20101012
  Transmission Date: 20110411
  Serious: Yes (Other)
  Sender: FDA-Public Use
  Company Number: None

PATIENT
  Age: 20 Year
  Sex: Female
  Weight: 61.2356 kg

DRUGS (1)
  1. IMPLANON [Suspect]
     Indication: CONTRACEPTION
     Dosage: 68MG DAILY SUBDERMAL
     Route: 059
     Dates: start: 20100616, end: 20101011

REACTIONS (6)
  - ALOPECIA [None]
  - DEPRESSION [None]
  - MIGRAINE [None]
  - MOOD SWINGS [None]
  - SUICIDAL IDEATION [None]
  - SUICIDE ATTEMPT [None]
